FAERS Safety Report 5299520-X (Version None)
Quarter: 2007Q2

REPORT INFORMATION
  Report Type: 
  Country: None (occurrence: None)
  Receive Date: 20070417
  Receipt Date: 20070402
  Transmission Date: 20071010
  Serious: Yes (Hospitalization, Other)
  Sender: FDA-Public Use
  Company Number: US-AMGEN-STX199444

PATIENT
  Sex: Female

DRUGS (4)
  1. ENBREL [Suspect]
     Indication: RHEUMATOID ARTHRITIS
     Route: 058
     Dates: start: 20060419, end: 20061031
  2. ENBREL [Suspect]
     Indication: PSORIASIS
  3. PREDNISONE [Concomitant]
     Route: 065
  4. METHOTREXATE [Concomitant]
     Route: 065

REACTIONS (14)
  - ANAEMIA [None]
  - ANOREXIA [None]
  - BACTERIAL SEPSIS [None]
  - DEHYDRATION [None]
  - DEVICE RELATED INFECTION [None]
  - ENTEROBACTER INFECTION [None]
  - FALL [None]
  - LIVER FUNCTION TEST ABNORMAL [None]
  - LUNG DISORDER [None]
  - MALNUTRITION [None]
  - PNEUMONIA [None]
  - RESPIRATORY FAILURE [None]
  - STAPHYLOCOCCAL INFECTION [None]
  - WOUND INFECTION [None]
